FAERS Safety Report 7927949-7 (Version None)
Quarter: 2011Q4

REPORT INFORMATION
  Report Type: 
  Country: None (occurrence: None)
  Receive Date: 20111118
  Receipt Date: 20111118
  Transmission Date: 20120403
  Serious: Yes (Death, Other)
  Sender: FDA-Public Use
  Company Number: JP-PFIZER INC-2011250870

PATIENT
  Age: 53 Year
  Sex: Female

DRUGS (10)
  1. PAXIL [Concomitant]
     Dosage: 40 MG, 1X/DAY
     Route: 048
     Dates: start: 20100320, end: 20101204
  2. PAXIL [Concomitant]
     Dosage: 5 MG, 2X/DAY
     Route: 048
     Dates: start: 20110507, end: 20110705
  3. DEPAS [Concomitant]
     Indication: INSOMNIA
     Dosage: 0.5 MG, 1X/DAY
     Route: 048
     Dates: start: 20110405, end: 20110705
  4. ZOLOFT [Suspect]
     Indication: DEPRESSION
     Dosage: 25 MG, 1X/DAY
     Route: 048
     Dates: start: 20110705, end: 20110810
  5. PAXIL [Concomitant]
     Dosage: 10 MG, 2X/DAY
     Route: 048
     Dates: start: 20101204, end: 20110507
  6. LITHIUM CARBONATE [Suspect]
     Dosage: 100 MG, 3X/DAY
     Route: 048
     Dates: start: 20110226
  7. ZOLOFT [Suspect]
     Dosage: 50 MG, 1X/DAY
     Route: 048
     Dates: start: 20110810
  8. ATARAX [Suspect]
     Indication: INSOMNIA
     Dosage: 25 MG, 1X/DAY
     Route: 048
     Dates: start: 20110705
  9. LITHIUM CARBONATE [Suspect]
     Indication: DEPRESSION
     Dosage: 100 MG, 2X/DAY
     Route: 048
     Dates: start: 20101204, end: 20110226
  10. PAXIL [Concomitant]
     Indication: DEPRESSION
     Dosage: UNK
     Route: 048
     Dates: start: 20100123, end: 20100319

REACTIONS (3)
  - SELF ESTEEM DECREASED [None]
  - APATHY [None]
  - COMPLETED SUICIDE [None]
